FAERS Safety Report 18048342 (Version 1)
Quarter: 2020Q3

REPORT INFORMATION
  Report Type: Spontaneous
  Country: US (occurrence: US)
  Receive Date: 20200720
  Receipt Date: 20200720
  Transmission Date: 20201103
  Serious: Yes (Life-Threatening, Hospitalization)
  Sender: FDA-Public Use
  Company Number: None

PATIENT
  Age: 11 Year
  Sex: Female
  Weight: 137.6 kg

DRUGS (3)
  1. MONTELUKAST [Suspect]
     Active Substance: MONTELUKAST SODIUM
     Dates: start: 20191228
  2. LEVOTHYROXINE 50 MCG 1 TABLET DAILY [Concomitant]
  3. LEVOTHYROXINE 50MCG [Suspect]
     Active Substance: LEVOTHYROXINE

REACTIONS (4)
  - Suicide attempt [None]
  - Overdose [None]
  - Abdominal discomfort [None]
  - Nausea [None]

NARRATIVE: CASE EVENT DATE: 20200717
